FAERS Safety Report 9893307 (Version 2)
Quarter: 2014Q1

REPORT INFORMATION
  Report Type: Report from Study
  Country: AU (occurrence: AU)
  Receive Date: 20140213
  Receipt Date: 20140221
  Transmission Date: 20141002
  Serious: Yes (Death)
  Sender: FDA-Public Use
  Company Number: AU-ROCHE-1348388

PATIENT
  Sex: Male

DRUGS (2)
  1. AVASTIN [Suspect]
     Indication: GLIOMA
     Route: 065
     Dates: start: 20110916
  2. AVASTIN [Suspect]
     Route: 065
     Dates: start: 20131122, end: 20140207

REACTIONS (1)
  - Death [Fatal]
